FAERS Safety Report 25138195 (Version 1)
Quarter: 2025Q1

REPORT INFORMATION
  Report Type: Spontaneous
  Country: US (occurrence: US)
  Receive Date: 20250330
  Receipt Date: 20250330
  Transmission Date: 20250409
  Serious: No
  Sender: COREPHARMA LLC
  Company Number: US-CorePharma LLC-2173890

PATIENT

DRUGS (2)
  1. LISINOPRIL [Suspect]
     Active Substance: LISINOPRIL
     Indication: Blood pressure abnormal
  2. HYDROCHLOROTHIAZIDE [Suspect]
     Active Substance: HYDROCHLOROTHIAZIDE

REACTIONS (1)
  - Tinnitus [Unknown]
